FAERS Safety Report 9072074 (Version 1)
Quarter: 2013Q1

REPORT INFORMATION
  Report Type: Report from Study
  Country: US (occurrence: US)
  Receive Date: 20130129
  Receipt Date: 20130129
  Transmission Date: 20140127
  Serious: No
  Sender: FDA-Public Use
  Company Number: US-ABBOTT-12P-163-0928245-00

PATIENT
  Age: 56 Year
  Sex: Female

DRUGS (6)
  1. HUMIRA 40 MG/0.8 ML PEN [Suspect]
     Indication: ANKYLOSING SPONDYLITIS
     Dates: start: 20120408
  2. IMURAN [Concomitant]
     Indication: ANKYLOSING SPONDYLITIS
     Dosage: DAILY
  3. TRAZODONE [Concomitant]
     Indication: INSOMNIA
     Dosage: AT BED TIME
  4. KLONOPIN [Concomitant]
     Indication: MUSCLE RELAXANT THERAPY
  5. TYLENOL [Concomitant]
     Indication: PAIN
  6. GENERIC THYROID [Concomitant]
     Indication: BLOOD THYROID STIMULATING HORMONE DECREASED

REACTIONS (1)
  - Injection site pain [Recovered/Resolved]
